FAERS Safety Report 11701403 (Version 1)
Quarter: 2015Q4

REPORT INFORMATION
  Report Type: Spontaneous
  Country: US (occurrence: US)
  Receive Date: 20151105
  Receipt Date: 20151105
  Transmission Date: 20160304
  Serious: No
  Sender: FDA-Public Use
  Company Number: PHEH2015US022512

PATIENT
  Age: 56 Year
  Sex: Male

DRUGS (2)
  1. AMLODINE//AMLODIPINE BESILATE [Concomitant]
     Indication: PRODUCT USED FOR UNKNOWN INDICATION
     Route: 065
  2. VOTRIENT [Suspect]
     Active Substance: PAZOPANIB HYDROCHLORIDE
     Indication: MALIGNANT URINARY TRACT NEOPLASM
     Dosage: 4 DF, QD (01 HOUR PRIOR OR 02 HOURS AFTER A MEAL)
     Route: 048

REACTIONS (1)
  - Diarrhoea [Recovered/Resolved]
